FAERS Safety Report 15375850 (Version 2)
Quarter: 2018Q4

REPORT INFORMATION
  Report Type: Spontaneous
  Country: SA (occurrence: SA)
  Receive Date: 20180912
  Receipt Date: 20180914
  Transmission Date: 20190204
  Serious: Yes (Other)
  Sender: FDA-Public Use
  Company Number: SA-009507513-1809SAU000718

PATIENT
  Sex: Male

DRUGS (2)
  1. JANUMET [Suspect]
     Active Substance: METFORMIN HYDROCHLORIDE\SITAGLIPTIN PHOSPHATE
     Indication: DIABETES MELLITUS
     Route: 048
  2. JANUMET [Suspect]
     Active Substance: METFORMIN HYDROCHLORIDE\SITAGLIPTIN PHOSPHATE
     Indication: DIABETES MELLITUS
     Dosage: UNK
     Route: 048

REACTIONS (6)
  - Counterfeit product administered [Unknown]
  - Diabetes mellitus inadequate control [Unknown]
  - Diabetic coma [Unknown]
  - Red blood cell count increased [Unknown]
  - Mean cell haemoglobin decreased [Unknown]
  - Mean cell volume decreased [Unknown]

NARRATIVE: CASE EVENT DATE: 20180901
